FAERS Safety Report 13142230 (Version 3)
Quarter: 2017Q1

REPORT INFORMATION
  Report Type: Report from Study
  Country: CA (occurrence: CA)
  Receive Date: 20170124
  Receipt Date: 20170303
  Transmission Date: 20170428
  Serious: Yes (Hospitalization)
  Sender: FDA-Public Use
  Company Number: CA-TAKEDA-2017TUS001307

PATIENT
  Age: 64 Year
  Sex: Male

DRUGS (23)
  1. VEDOLIZUMAB [Suspect]
     Active Substance: VEDOLIZUMAB
     Indication: CROHN^S DISEASE
     Dosage: 300 MG, UNK
     Route: 042
     Dates: start: 20161116
  2. NITROSPRAY [Concomitant]
     Dosage: UNK
  3. PREDNISONE. [Concomitant]
     Active Substance: PREDNISONE
     Dosage: 15 MG, UNK
  4. OXAZEPAM. [Concomitant]
     Active Substance: OXAZEPAM
     Dosage: UNK
  5. LOPRESSOR [Concomitant]
     Active Substance: METOPROLOL TARTRATE
     Indication: BLOOD PRESSURE ABNORMAL
     Dosage: UNK
     Dates: start: 2017
  6. ADVAIR HFA [Concomitant]
     Active Substance: FLUTICASONE PROPIONATE\SALMETEROL XINAFOATE
     Dosage: 25 ?G, UNK
  7. VITAMIN D [Concomitant]
     Active Substance: CHOLECALCIFEROL
     Dosage: UNK
  8. ACETYLSALICYLIC ACID [Concomitant]
     Active Substance: ASPIRIN
     Dosage: 80 MG, UNK
  9. HYDROMORPHONE [Concomitant]
     Active Substance: HYDROMORPHONE
     Dosage: UNK
  10. CALCIUM [Concomitant]
     Active Substance: CALCIUM
     Dosage: UNK, QD
  11. FUROSEMIDE. [Concomitant]
     Active Substance: FUROSEMIDE
     Dosage: 80 MG, BID
  12. PREGABALIN. [Concomitant]
     Active Substance: PREGABALIN
     Dosage: 50 MG, UNK
  13. PRO-BISOPROLOL [Concomitant]
     Dosage: 10 MG, UNK
  14. PRO RAMIPRIL [Concomitant]
     Dosage: UNK
  15. ALENDRONATE [Concomitant]
     Active Substance: ALENDRONATE SODIUM
     Dosage: 70 MG, UNK
  16. ATORVASTATIN [Concomitant]
     Active Substance: ATORVASTATIN
     Dosage: 20 MG, UNK
  17. FUROSEMIDE. [Concomitant]
     Active Substance: FUROSEMIDE
     Dosage: 20 MG, QD
  18. MEZAVANT [Concomitant]
     Active Substance: MESALAMINE
     Dosage: UNK
  19. VITAMIN B 12 NOS [Concomitant]
     Dosage: UNK
  20. PANTOPRAZOLE [Concomitant]
     Active Substance: PANTOPRAZOLE SODIUM
     Dosage: UNK
  21. SPIRIVA [Concomitant]
     Active Substance: TIOTROPIUM BROMIDE MONOHYDRATE
     Dosage: 18 ?G, UNK
  22. SPIRONOLACTONE TEVA [Concomitant]
     Active Substance: SPIRONOLACTONE
     Dosage: 25 MG, QD
  23. TRAMADOL ACET [Concomitant]
     Dosage: UNK

REACTIONS (4)
  - Blood pressure inadequately controlled [Unknown]
  - Cellulitis [Recovered/Resolved]
  - Influenza [Unknown]
  - Wound [Unknown]

NARRATIVE: CASE EVENT DATE: 2017
